FAERS Safety Report 25126765 (Version 1)
Quarter: 2025Q1

REPORT INFORMATION
  Report Type: Spontaneous
  Country: US (occurrence: US)
  Receive Date: 20250327
  Receipt Date: 20250327
  Transmission Date: 20250409
  Serious: No
  Sender: AMGEN
  Company Number: US-AMGEN-USASP2025056940

PATIENT
  Age: 48 Year
  Sex: Female

DRUGS (8)
  1. PREDNISONE [Suspect]
     Active Substance: PREDNISONE
     Indication: Neurodermatitis
     Dosage: 40 MILLIGRAM, QD (FOR 5 DAYS)
     Route: 065
     Dates: start: 202502
  2. PREDNISONE [Suspect]
     Active Substance: PREDNISONE
     Dosage: 30 MILLIGRAM, QD (FOR 5 DAYS)
     Route: 065
  3. PREDNISONE [Suspect]
     Active Substance: PREDNISONE
     Dosage: 20 MILLIGRAM, QD (FOR 5 DAYS)
     Route: 065
  4. PREDNISONE [Suspect]
     Active Substance: PREDNISONE
     Dosage: 10 MILLIGRAM, QD (FOR 5 DAYS)
     Route: 065
     Dates: end: 202503
  5. DOXYCYCLINE [Concomitant]
     Active Substance: DOXYCYCLINE
  6. TRIAMCINOLONE [Concomitant]
     Active Substance: TRIAMCINOLONE
  7. ALLEGRA [Concomitant]
     Active Substance: FEXOFENADINE HYDROCHLORIDE
  8. XYZAL [Concomitant]
     Active Substance: LEVOCETIRIZINE DIHYDROCHLORIDE

REACTIONS (6)
  - Drug ineffective [Unknown]
  - Rash pruritic [Unknown]
  - Plastic surgery [Unknown]
  - Dermatitis atopic [Unknown]
  - Pigmentation disorder [Unknown]
  - Benign neoplasm of skin [Unknown]
